FAERS Safety Report 6197215-1 (Version None)
Quarter: 2009Q2

REPORT INFORMATION
  Report Type: 
  Country: None (occurrence: None)
  Receive Date: 20090521
  Receipt Date: 20070403
  Transmission Date: 20091009
  Serious: No
  Sender: FDA-Public Use
  Company Number: US-ASTRAZENECA-2006UW08239

PATIENT
  Age: 11223 Day
  Sex: Male
  Weight: 72.6 kg

DRUGS (29)
  1. SEROQUEL [Suspect]
  2. INDERAL [Concomitant]
     Dosage: 20-240 MG
  3. DIAZEPAM [Concomitant]
     Indication: ANXIETY
     Dosage: 5-20 MG
     Route: 048
  4. DIAZEPAM [Concomitant]
     Indication: INSOMNIA
     Dosage: 5-20 MG
     Route: 048
  5. HYDROCODONE BITARTRATE [Concomitant]
  6. TRAMADOL HCL [Concomitant]
  7. RESTORIL [Concomitant]
  8. TRIMOX [Concomitant]
  9. DICLOFENAC [Concomitant]
  10. PATANOL [Concomitant]
  11. PROCHLORPERAZINE [Concomitant]
  12. ZYRTEC [Concomitant]
  13. DICYCLOMINE [Concomitant]
  14. NEXIUM [Concomitant]
  15. METFORMIN HYDROCHLORIDE [Concomitant]
  16. CITALOPRAM HYDROBROMIDE [Concomitant]
  17. FLEXERIL [Concomitant]
  18. NAPROXEN [Concomitant]
     Dosage: 375-500 MG
  19. SULFAMETHOXAZOLE AND TRIMETHOPRIM [Concomitant]
  20. NICOTINE [Concomitant]
     Dosage: 21 MG/24 HR
  21. PREVACID [Concomitant]
  22. PROMETHAZINE [Concomitant]
  23. METOCLOPRAMIDE [Concomitant]
  24. OMEPRAZOLE [Concomitant]
  25. ALPRAZOLAM [Concomitant]
     Dosage: 0.5-1 MG
     Route: 048
  26. LANTUS [Concomitant]
     Dosage: 10 UNITS EVERY MORNING
     Dates: start: 20060824
  27. ENDOCET [Concomitant]
     Dosage: STRENGTH: 5/325 DISPENSED
  28. LORATADINE [Concomitant]
  29. PROTONIX [Concomitant]

REACTIONS (1)
  - DIABETES MELLITUS [None]
